FAERS Safety Report 24731436 (Version 1)
Quarter: 2024Q4

REPORT INFORMATION
  Report Type: Spontaneous
  Country: US (occurrence: US)
  Receive Date: 20241213
  Receipt Date: 20241213
  Transmission Date: 20250115
  Serious: Yes (Other)
  Sender: HIKMA
  Company Number: US-HIKMA PHARMACEUTICALS-US-H14001-24-11574

PATIENT
  Age: 30 Year
  Sex: Male

DRUGS (3)
  1. BLEOMYCIN [Suspect]
     Active Substance: BLEOMYCIN SULFATE
     Indication: Seminoma
     Dosage: UNKNOWN
     Route: 065
  2. CISPLATIN [Suspect]
     Active Substance: CISPLATIN
     Indication: Seminoma
     Dosage: UNKNOWN
     Route: 065
  3. ETOPOSIDE [Suspect]
     Active Substance: ETOPOSIDE
     Indication: Seminoma
     Dosage: UNKNOWN
     Route: 065

REACTIONS (3)
  - Tumour lysis syndrome [Recovered/Resolved]
  - Oedema [Unknown]
  - Oedema peripheral [Unknown]
